FAERS Safety Report 9230304 (Version 1)
Quarter: 2013Q2

REPORT INFORMATION
  Report Type: Spontaneous
  Country: US (occurrence: None)
  Receive Date: 20130411
  Receipt Date: 20130411
  Transmission Date: 20140414
  Serious: Yes (Other)
  Sender: FDA-Public Use
  Company Number: JPI-P-030980

PATIENT
  Age: 46 Year
  Sex: Female
  Weight: 66.68 kg

DRUGS (13)
  1. XYREM [Suspect]
     Indication: PRODUCT USED FOR UNKNOWN INDICATION
     Dosage: (2.25 GM,2 IN 1 D)
     Route: 048
     Dates: start: 20051025
  2. DEPLIN [Concomitant]
  3. FLUTICASONE FUROATE [Concomitant]
  4. DILTIAZEM HYDROCHLORIDE [Concomitant]
  5. DIAZEPAM [Concomitant]
  6. VALACYCLOVIR HYDROCHLORIDE [Concomitant]
  7. FLUTICASONE PROPIONATE [Concomitant]
  8. CELECOXIB [Concomitant]
  9. DULOXETINE [Concomitant]
  10. PROCHLORPERAZINE [Concomitant]
  11. BUTALBITAL [Concomitant]
  12. DIPHENOXYLATE AND ATROPINE [Concomitant]
  13. LEVALBUTEROL [Concomitant]

REACTIONS (1)
  - Knee arthroplasty [None]
